FAERS Safety Report 9211040 (Version 2)
Quarter: 2013Q2

REPORT INFORMATION
  Report Type: Spontaneous
  Country: US (occurrence: US)
  Receive Date: 20130404
  Receipt Date: 20130517
  Transmission Date: 20140414
  Serious: Yes (Other)
  Sender: FDA-Public Use
  Company Number: US-PFIZER INC-2013103099

PATIENT
  Age: 42 Year
  Sex: Female
  Weight: 72.56 kg

DRUGS (1)
  1. CHAPSTICK [Suspect]
     Indication: LIP DRY
     Dosage: UNK, THREE TO FOUR TIMES A DAY
     Dates: end: 201301

REACTIONS (3)
  - Poor quality drug administered [Unknown]
  - Oral fungal infection [Recovered/Resolved]
  - Product odour abnormal [Recovered/Resolved]
